FAERS Safety Report 13202077 (Version 6)
Quarter: 2017Q4

REPORT INFORMATION
  Report Type: Report from Study
  Country: IT (occurrence: IT)
  Receive Date: 20170209
  Receipt Date: 20171212
  Transmission Date: 20180320
  Serious: Yes (Hospitalization)
  Sender: FDA-Public Use
  Company Number: IT-AMGEN-ITASP2017017498

PATIENT
  Age: 64 Year
  Sex: Male

DRUGS (7)
  1. BLINATUMOMAB [Suspect]
     Active Substance: BLINATUMOMAB
     Indication: ACUTE LYMPHOCYTIC LEUKAEMIA
     Dosage: QD
     Route: 042
     Dates: start: 20161128
  2. TAMSULOSIN [Concomitant]
     Active Substance: TAMSULOSIN
     Dosage: UNK
  3. EUTIROX [Concomitant]
     Active Substance: LEVOTHYROXINE SODIUM
     Dosage: UNK
  4. MINITRAN [Concomitant]
     Active Substance: NITROGLYCERIN
     Dosage: UNK
  5. SELEPARINA [Concomitant]
     Active Substance: NADROPARIN CALCIUM
     Dosage: UNK
  6. ENAPREN [Concomitant]
     Active Substance: ENALAPRIL MALEATE
     Dosage: UNK
  7. LAMIVUDINE. [Concomitant]
     Active Substance: LAMIVUDINE
     Dosage: UNK

REACTIONS (3)
  - Dysarthria [Recovered/Resolved]
  - Asthenia [Recovered/Resolved]
  - Confusional state [Recovered/Resolved]

NARRATIVE: CASE EVENT DATE: 20170121
